FAERS Safety Report 8299677-2 (Version None)
Quarter: 2012Q2

REPORT INFORMATION
  Report Type: 
  Country: None (occurrence: None)
  Receive Date: 20120419
  Receipt Date: 20120413
  Transmission Date: 20120825
  Serious: Yes (Hospitalization)
  Sender: FDA-Public Use
  Company Number: US-ELI_LILLY_AND_COMPANY-US201204004804

PATIENT
  Sex: Female

DRUGS (11)
  1. LOSARTAN POTASSIUM [Concomitant]
  2. ULTRAM [Concomitant]
     Dosage: UNK, OTHER
  3. CALCIUM OYSTER SHELL [Concomitant]
     Dosage: 500 MG, UNKNOWN
  4. GEMFIBROZIL [Concomitant]
     Dosage: UNK, BID
  5. RANITIDINE [Concomitant]
     Dosage: 75 MG, BID
  6. FISH OIL [Concomitant]
     Dosage: 1000 MG, BID
  7. PRAVACHOL [Concomitant]
     Dosage: 40 MG, UNKNOWN
  8. FORTEO [Suspect]
     Indication: OSTEOPOROSIS
     Dosage: 20 UG, QD
     Dates: start: 20110601
  9. ENTERIC ASPIRIN [Concomitant]
     Dosage: 325 MG, UNKNOWN
  10. METOPROLOL SUCCINATE [Concomitant]
     Dosage: 25 MG, UNKNOWN
  11. VITAMIN D [Concomitant]
     Dosage: 1000 IU, OTHER

REACTIONS (3)
  - INJECTION SITE HAEMATOMA [None]
  - BACTERIAL TEST POSITIVE [None]
  - NAUSEA [None]
